FAERS Safety Report 7118526-9 (Version None)
Quarter: 2010Q4

REPORT INFORMATION
  Report Type: 
  Country: None (occurrence: None)
  Receive Date: 20101123
  Receipt Date: 20101115
  Transmission Date: 20110411
  Serious: Yes (Other)
  Sender: FDA-Public Use
  Company Number: JP-ASTRAZENECA-2008AP05625

PATIENT
  Age: 80 Year
  Sex: Female

DRUGS (1)
  1. OMEPRAL [Suspect]
     Route: 048
     Dates: start: 20061001

REACTIONS (7)
  - BARRETT'S OESOPHAGUS [None]
  - CARDIAC HYPERTROPHY [None]
  - CEREBRAL INFARCTION [None]
  - COLON CANCER [None]
  - COMPRESSION FRACTURE [None]
  - DIZZINESS [None]
  - SYSTEMIC LUPUS ERYTHEMATOSUS [None]
